FAERS Safety Report 19191041 (Version 1)
Quarter: 2021Q2

REPORT INFORMATION
  Report Type: Spontaneous
  Country: US (occurrence: US)
  Receive Date: 20210428
  Receipt Date: 20210428
  Transmission Date: 20210717
  Serious: No
  Sender: FDA-Public Use
  Company Number: US-MYLANLABS-2021M1023258

PATIENT
  Sex: Female
  Weight: 68 kg

DRUGS (2)
  1. XULANE [Suspect]
     Active Substance: ETHINYL ESTRADIOL\NORELGESTROMIN
     Dosage: 35/150, MICROGRAM QD
     Route: 062
  2. XULANE [Suspect]
     Active Substance: ETHINYL ESTRADIOL\NORELGESTROMIN
     Indication: CONTRACEPTION
     Dosage: 35/150, MICROGRAM QD
     Route: 062

REACTIONS (3)
  - Application site rash [Recovering/Resolving]
  - Product adhesion issue [Not Recovered/Not Resolved]
  - Application site pain [Recovering/Resolving]
